FAERS Safety Report 25080847 (Version 1)
Quarter: 2025Q1

REPORT INFORMATION
  Report Type: Spontaneous
  Country: GB (occurrence: GB)
  Receive Date: 20250315
  Receipt Date: 20250315
  Transmission Date: 20250408
  Serious: Yes (Other)
  Sender: AUROBINDO
  Company Number: GB-MHRA-MED-202502280718265570-YHJML

PATIENT
  Age: 69 Year
  Sex: Female
  Weight: 54 kg

DRUGS (1)
  1. PRAMIPEXOLE [Suspect]
     Active Substance: PRAMIPEXOLE
     Indication: Restless legs syndrome
     Route: 065

REACTIONS (1)
  - Restless leg augmentation syndrome [Recovered/Resolved with Sequelae]
